FAERS Safety Report 18334604 (Version 1)
Quarter: 2020Q4

REPORT INFORMATION
  Report Type: Spontaneous
  Country: US (occurrence: US)
  Receive Date: 20201001
  Receipt Date: 20201001
  Transmission Date: 20210113
  Serious: Yes (Other)
  Sender: FDA-Public Use
  Company Number: US-INCYTE CORPORATION-2020IN009443

PATIENT

DRUGS (1)
  1. JAKAFI [Suspect]
     Active Substance: RUXOLITINIB
     Dosage: UNK
     Route: 065

REACTIONS (5)
  - Dyspnoea [Unknown]
  - Splenomegaly [Unknown]
  - Asthenia [Unknown]
  - Hepatomegaly [Unknown]
  - Cardiac failure [Unknown]

NARRATIVE: CASE EVENT DATE: 2016
